FAERS Safety Report 17796735 (Version 3)
Quarter: 2020Q2

REPORT INFORMATION
  Report Type: Report from Study
  Country: US (occurrence: US)
  Receive Date: 20200518
  Receipt Date: 20200604
  Transmission Date: 20200714
  Serious: Yes (Life-Threatening, Other)
  Sender: FDA-Public Use
  Company Number: US-SA-2020SA095169

PATIENT

DRUGS (32)
  1. FLUTICASONE. [Concomitant]
     Active Substance: FLUTICASONE
     Dosage: 50 MG QD
     Route: 045
     Dates: start: 20200331
  2. LISINOPRIL. [Concomitant]
     Active Substance: LISINOPRIL
     Indication: HYPERTENSION
     Dosage: 20 MG, QD
     Route: 050
     Dates: start: 20200330
  3. ROSUVASTATIN. [Concomitant]
     Active Substance: ROSUVASTATIN
     Indication: HYPERCHOLESTEROLAEMIA
     Dosage: 5 MG, QD
     Route: 048
     Dates: start: 20200331
  4. PLAVIX [Concomitant]
     Active Substance: CLOPIDOGREL BISULFATE
     Indication: COAGULOPATHY
     Dosage: 75 MG, QD
     Route: 048
     Dates: start: 20200331
  5. HYDROXYCHLOROQUINE [Concomitant]
     Active Substance: HYDROXYCHLOROQUINE
     Indication: CORONAVIRUS INFECTION
     Dosage: 200 MG BID
     Route: 048
     Dates: start: 20200402, end: 20200402
  6. CLOPIDOGREL [Concomitant]
     Active Substance: CLOPIDOGREL BISULFATE
     Indication: COAGULOPATHY
     Dosage: 75 MG, QD
     Route: 048
     Dates: start: 20200331
  7. AZITHROMYCIN ANHYDROUS. [Concomitant]
     Active Substance: AZITHROMYCIN ANHYDROUS
     Indication: BACTERIAL INFECTION
     Dosage: 500 MG, 1X
     Route: 048
     Dates: start: 20200331, end: 20200331
  8. CEFAZOLIN [Concomitant]
     Active Substance: CEFAZOLIN
     Indication: INFECTION
     Dosage: 2 GM,/50ML, ON CALL
     Route: 042
     Dates: start: 20200424, end: 20200424
  9. FLUTICASONE. [Concomitant]
     Active Substance: FLUTICASONE
     Indication: PROPHYLAXIS
     Dosage: 100 UG QD
     Route: 045
     Dates: start: 20200331
  10. HYDROXYCHLOROQUINE [Concomitant]
     Active Substance: HYDROXYCHLOROQUINE
     Dosage: 400 MG, BID
     Route: 048
     Dates: start: 20200401, end: 20200401
  11. METOPROLOL. [Concomitant]
     Active Substance: METOPROLOL
     Indication: HYPERTENSION
     Dosage: 25 MG, TID
     Route: 048
  12. VANCOMYCIN [Concomitant]
     Active Substance: VANCOMYCIN
     Dosage: 500 MG, QD
     Route: 042
     Dates: start: 20200402, end: 20200403
  13. AZITHROMYCIN ANHYDROUS. [Concomitant]
     Active Substance: AZITHROMYCIN ANHYDROUS
     Indication: CORONAVIRUS INFECTION
     Dosage: 250 MG, QD
     Route: 048
     Dates: start: 20200331, end: 20200402
  14. DECADRON [Concomitant]
     Active Substance: DEXAMETHASONE
     Indication: CORONAVIRUS INFECTION
     Dosage: 4 MG, Q6H
     Route: 042
     Dates: start: 20200416
  15. LOPRESSOR [Concomitant]
     Active Substance: METOPROLOL TARTRATE
     Indication: HYPERTENSION
     Dosage: 25 MG, TID
     Route: 048
  16. POLYSPORIN [Concomitant]
     Active Substance: BACITRACIN ZINC\POLYMYXIN B SULFATE
     Indication: INFLAMMATION
     Dosage: 1, AS DIRECTED
     Route: 061
     Dates: start: 20200505, end: 20200508
  17. SARILUMAB [Suspect]
     Active Substance: SARILUMAB
     Indication: COVID-19
     Dosage: 400 MG, SINGLE
     Route: 042
     Dates: start: 20200331, end: 20200331
  18. ACETAMINOPHEN. [Concomitant]
     Active Substance: ACETAMINOPHEN
     Indication: PRODUCT USED FOR UNKNOWN INDICATION
     Dosage: 650 MG, Q6H
     Route: 065
     Dates: start: 20200330
  19. AZITHROMYCIN ANHYDROUS. [Concomitant]
     Active Substance: AZITHROMYCIN ANHYDROUS
     Indication: CORONAVIRUS INFECTION
  20. SARILUMAB [Suspect]
     Active Substance: SARILUMAB
     Dosage: 400 MG, SINGLE
     Route: 042
     Dates: start: 20200409, end: 20200410
  21. VANCOMYCIN [Concomitant]
     Active Substance: VANCOMYCIN
     Indication: CORONAVIRUS INFECTION
     Dosage: 1250 UG, 1X
     Route: 042
     Dates: start: 20200330, end: 20200330
  22. CRESTOR [Concomitant]
     Active Substance: ROSUVASTATIN CALCIUM
     Indication: HYPERCHOLESTEROLAEMIA
     Dosage: 5 MG, QD
     Route: 048
     Dates: start: 20200331
  23. LASIX [Concomitant]
     Active Substance: FUROSEMIDE
     Indication: RENAL FAILURE
     Dosage: 40 MG, AS NECESSARY
  24. CEFEPIME [Concomitant]
     Active Substance: CEFEPIME HYDROCHLORIDE
     Indication: PNEUMONIA
     Dosage: 1 G, QD
     Route: 042
     Dates: start: 20200330, end: 20200406
  25. VANCOMYCIN [Concomitant]
     Active Substance: VANCOMYCIN
     Indication: CORONAVIRUS INFECTION
     Dosage: 500 MG, 1X
     Route: 042
     Dates: start: 20200331, end: 20200331
  26. CRESTOR [Concomitant]
     Active Substance: ROSUVASTATIN CALCIUM
     Indication: HYPERCHOLESTEROLAEMIA
  27. SARILUMAB [Suspect]
     Active Substance: SARILUMAB
     Dosage: 400 MG, SINGLE
     Route: 042
     Dates: start: 20200401, end: 20200401
  28. SARILUMAB [Suspect]
     Active Substance: SARILUMAB
     Dosage: 400 MG, SINGLE
     Route: 042
     Dates: start: 20200416, end: 20200416
  29. FLUTICASONE. [Concomitant]
     Active Substance: FLUTICASONE
     Dosage: 100 UG
     Route: 045
     Dates: start: 20200331
  30. ACETAMINOPHEN. [Concomitant]
     Active Substance: ACETAMINOPHEN
     Indication: PRODUCT USED FOR UNKNOWN INDICATION
  31. PLAVIX [Concomitant]
     Active Substance: CLOPIDOGREL BISULFATE
     Indication: CORONARY ARTERY DISEASE
  32. LOPRESSOR [Concomitant]
     Active Substance: METOPROLOL TARTRATE
     Dosage: 25 MG, TID
     Route: 048

REACTIONS (7)
  - Respiratory distress [Recovered/Resolved]
  - Staphylococcal bacteraemia [Recovered/Resolved]
  - Hypokalaemia [Recovered/Resolved]
  - Liver function test increased [Recovered/Resolved]
  - Acute respiratory distress syndrome [Unknown]
  - Pneumonia bacterial [Unknown]
  - Dysphagia [Unknown]

NARRATIVE: CASE EVENT DATE: 20200402
